FAERS Safety Report 6237847-5 (Version None)
Quarter: 2009Q2

REPORT INFORMATION
  Report Type: 
  Country: None (occurrence: None)
  Receive Date: 20090617
  Receipt Date: 20090610
  Transmission Date: 20091009
  Serious: Yes (Disabling)
  Sender: FDA-Public Use
  Company Number: SPV1-2009-00955

PATIENT
  Age: 5 Year
  Sex: Male
  Weight: 15 kg

DRUGS (10)
  1. FOSRENOL [Suspect]
     Indication: RENAL FAILURE CHRONIC
     Dosage: 250 MG, 3X DAY: TID, ORAL
     Route: 048
     Dates: start: 20070501, end: 20070601
  2. FOSRENOL [Suspect]
     Indication: RENAL FAILURE CHRONIC
     Dosage: 250 MG, 3X DAY: TID, ORAL
     Route: 048
     Dates: start: 20070801
  3. CINACALCET(CINACALCET) [Suspect]
     Indication: HYPERPARATHYROIDISM
     Dosage: 10 MG, 1X DAY:QD, ORAL, 20 MG, 1X DAY: QD, ORAL, 30 MG, 1X DAY:QD, ORAL
     Route: 048
     Dates: end: 20070901
  4. CINACALCET(CINACALCET) [Suspect]
     Indication: HYPERPARATHYROIDISM
     Dosage: 10 MG, 1X DAY:QD, ORAL, 20 MG, 1X DAY: QD, ORAL, 30 MG, 1X DAY:QD, ORAL
     Route: 048
     Dates: start: 20070601
  5. ALFACALCIDOL(ALFACALCIDOL) [Concomitant]
  6. CALCIUM CARBONATE (CALCIUM CARBONATE) [Concomitant]
  7. SEVELAMER (SEVELAMER) [Concomitant]
  8. SODIUM BICARBONATE IN PLASTIC CONTAINER [Concomitant]
  9. IRON (IRON) [Concomitant]
  10. DECAPEPTYL (TRIPTORELIN PAMOATE) [Concomitant]

REACTIONS (6)
  - DYSPEPSIA [None]
  - NAUSEA [None]
  - OFF LABEL USE [None]
  - PRECOCIOUS PUBERTY [None]
  - VOMITING [None]
  - WEIGHT DECREASED [None]
